FAERS Safety Report 5695582-6 (Version None)
Quarter: 2008Q2

REPORT INFORMATION
  Report Type: 
  Country: None (occurrence: None)
  Receive Date: 20080407
  Receipt Date: 20080306
  Transmission Date: 20081010
  Serious: No
  Sender: FDA-Public Use
  Company Number: US-BAYER-200811578NA

PATIENT
  Sex: Male

DRUGS (3)
  1. CIPRO [Suspect]
     Indication: DRUG USE FOR UNKNOWN INDICATION
     Route: 048
  2. ZETIA [Concomitant]
  3. LEVOTHYROXINE SODIUM [Concomitant]

REACTIONS (1)
  - ARRHYTHMIA [None]
